FAERS Safety Report 5620864-3 (Version None)
Quarter: 2008Q1

REPORT INFORMATION
  Report Type: 
  Country: None (occurrence: None)
  Receive Date: 20080208
  Receipt Date: 20080131
  Transmission Date: 20080703
  Serious: Yes (Hospitalization, Disabling, Other)
  Sender: FDA-Public Use
  Company Number: SE-PFIZER INC-2008006548

PATIENT
  Sex: Male
  Weight: 67 kg

DRUGS (1)
  1. SU-011,248 [Suspect]
     Indication: RENAL CANCER METASTATIC
     Route: 048
     Dates: start: 20071019, end: 20071115

REACTIONS (3)
  - AORTIC ANEURYSM [None]
  - ARTERIAL THROMBOSIS [None]
  - PAIN IN EXTREMITY [None]
